FAERS Safety Report 8219067-8 (Version None)
Quarter: 2012Q1

REPORT INFORMATION
  Report Type: 
  Country: None (occurrence: None)
  Receive Date: 20120319
  Receipt Date: 20120312
  Transmission Date: 20120608
  Serious: Yes (Life-Threatening, Hospitalization)
  Sender: FDA-Public Use
  Company Number: JP-BRISTOL-MYERS SQUIBB COMPANY-15805666

PATIENT
  Age: 86 Year
  Sex: Male
  Weight: 47 kg

DRUGS (1)
  1. ERBITUX [Suspect]
     Indication: COLON CANCER
     Dosage: MOST RECNT DOSE ON 03FEB11.STRENGTH:5MG/ML 10-NOV-11:400MG/M2 18NOV10-03FEB11:250MG/M2
     Route: 041
     Dates: start: 20101110, end: 20110203

REACTIONS (3)
  - ACNE [None]
  - DUODENAL ULCER [None]
  - ANAEMIA [None]
